FAERS Safety Report 16750189 (Version 1)
Quarter: 2019Q4

REPORT INFORMATION
  Report Type: Spontaneous
  Country: US (occurrence: US)
  Receive Date: 20190827
  Receipt Date: 20190827
  Transmission Date: 20200122
  Serious: Yes (Other)
  Sender: FDA-Public Use
  Company Number: None

PATIENT
  Age: 49 Year
  Sex: Male
  Weight: 117 kg

DRUGS (1)
  1. BUPROPION 100 MG [Suspect]
     Active Substance: BUPROPION
     Indication: ANXIETY
     Route: 048

REACTIONS (2)
  - Dyspnoea [None]
  - Suspected product quality issue [None]

NARRATIVE: CASE EVENT DATE: 20190307
